FAERS Safety Report 5067509-1 (Version None)
Quarter: 2006Q3

REPORT INFORMATION
  Report Type: 
  Country: None (occurrence: None)
  Receive Date: 20060728
  Receipt Date: 20060712
  Transmission Date: 20061208
  Serious: Yes (Other)
  Sender: FDA-Public Use
  Company Number: US200607002188

PATIENT
  Sex: Male
  Weight: 78.5 kg

DRUGS (1)
  1. ZYPREXA [Suspect]
     Dosage: 2.5 MG,
     Dates: start: 20041001

REACTIONS (3)
  - DIABETES MELLITUS [None]
  - HYPERTENSION [None]
  - MYOCARDIAL ISCHAEMIA [None]
